FAERS Safety Report 24717539 (Version 2)
Quarter: 2025Q1

REPORT INFORMATION
  Report Type: Spontaneous
  Country: US (occurrence: US)
  Receive Date: 20241210
  Receipt Date: 20250123
  Transmission Date: 20250408
  Serious: No
  Sender: Haleon PLC
  Company Number: US-HALEON-2214165

PATIENT
  Age: 28 Year
  Sex: Male

DRUGS (1)
  1. GAVISCON REGULAR STRENGTH (ALUMINUM HYDROXIDE\MAGNESIUM TRISILICATE) [Suspect]
     Active Substance: ALUMINUM HYDROXIDE\MAGNESIUM TRISILICATE
     Indication: Dyspepsia
     Dates: start: 20241207, end: 20241207

REACTIONS (1)
  - Drug ineffective [Unknown]

NARRATIVE: CASE EVENT DATE: 20241207
